FAERS Safety Report 9347940 (Version 1)
Quarter: 2013Q2

REPORT INFORMATION
  Report Type: Spontaneous
  Country: US (occurrence: US)
  Receive Date: 20130614
  Receipt Date: 20130614
  Transmission Date: 20140414
  Serious: Yes (Other)
  Sender: FDA-Public Use
  Company Number: US-TEVA-410903USA

PATIENT
  Age: 40 Year
  Sex: Female
  Weight: 49.94 kg

DRUGS (3)
  1. PARAGARD 380A [Suspect]
     Indication: CONTRACEPTION
     Route: 015
     Dates: start: 20130514, end: 20130524
  2. PROZAC [Concomitant]
     Indication: POSTPARTUM DEPRESSION
     Route: 048
  3. WELLBUTRIN [Concomitant]
     Indication: POSTPARTUM DEPRESSION
     Route: 048

REACTIONS (7)
  - Abasia [Recovered/Resolved]
  - Pain [Recovered/Resolved]
  - Uterine disorder [Recovered/Resolved]
  - Back pain [Recovered/Resolved]
  - Muscle spasms [Recovered/Resolved]
  - Menorrhagia [Recovered/Resolved]
  - Vomiting [Recovered/Resolved]
